FAERS Safety Report 6401311-0 (Version None)
Quarter: 2009Q4

REPORT INFORMATION
  Report Type: 
  Country: None (occurrence: None)
  Receive Date: 20091015
  Receipt Date: 20091012
  Transmission Date: 20100525
  Serious: Yes (Life-Threatening, Hospitalization, Other)
  Sender: FDA-Public Use
  Company Number: PHHY2009FR44060

PATIENT
  Sex: Female

DRUGS (6)
  1. VOLTAREN [Suspect]
     Dosage: 1 DF PER DAY
     Route: 048
     Dates: start: 20090825, end: 20090909
  2. SALAZOPYRINE [Suspect]
     Dosage: 1 G PER DAY
     Dates: start: 20090825, end: 20090907
  3. NEXIUM [Suspect]
     Dosage: UNK
     Dates: start: 20090825, end: 20090909
  4. ACUPAN [Suspect]
     Dosage: UNK
     Dates: start: 20090825, end: 20090909
  5. METHOTREXATE [Suspect]
     Dosage: 4 TABLETS
     Dates: start: 20090909
  6. RIFINAH [Suspect]
     Dosage: 1 TABLET
     Dates: start: 20090909

REACTIONS (18)
  - ALANINE AMINOTRANSFERASE INCREASED [None]
  - ANAEMIA [None]
  - ASPARTATE AMINOTRANSFERASE INCREASED [None]
  - BLOOD ALKALINE PHOSPHATASE INCREASED [None]
  - C-REACTIVE PROTEIN INCREASED [None]
  - DRUG RASH WITH EOSINOPHILIA AND SYSTEMIC SYMPTOMS [None]
  - EYELID OEDEMA [None]
  - FACE OEDEMA [None]
  - GAMMA-GLUTAMYLTRANSFERASE INCREASED [None]
  - LYMPHADENOPATHY [None]
  - LYMPHOCYTOSIS [None]
  - MONONUCLEOSIS SYNDROME [None]
  - PRURITUS GENERALISED [None]
  - PYREXIA [None]
  - RASH [None]
  - RASH GENERALISED [None]
  - RASH MACULO-PAPULAR [None]
  - RASH PUSTULAR [None]
